FAERS Safety Report 6816286-X (Version None)
Quarter: 2010Q2

REPORT INFORMATION
  Report Type: 
  Country: None (occurrence: None)
  Receive Date: 20100630
  Receipt Date: 20100616
  Transmission Date: 20101027
  Serious: Yes (Other)
  Sender: FDA-Public Use
  Company Number: MC201000184

PATIENT
  Age: 72 Year
  Sex: Male
  Weight: 82 kg

DRUGS (11)
  1. CLEVIPREX [Suspect]
     Indication: BLOOD PRESSURE MANAGEMENT
     Dosage: 2 MG, HR, INTRAVENOUS; 3 MG, HR, INTRAVENOUS
     Route: 042
  2. CLEVIPREX [Suspect]
     Indication: BLOOD PRESSURE MANAGEMENT
     Dosage: 2 MG, HR, INTRAVENOUS; 3 MG, HR, INTRAVENOUS
     Route: 042
  3. LISINOPRIL [Concomitant]
  4. AMLODIPINE [Concomitant]
  5. MIDAZOLAM HCL [Concomitant]
  6. FENTANYL-100 [Concomitant]
  7. LIDOCAINE [Concomitant]
  8. PROPOFOL [Concomitant]
  9. CISATRACURIUM (CISATRACURIUM) [Concomitant]
  10. ISOFLURANE [Concomitant]
  11. HEPARIN [Concomitant]

REACTIONS (3)
  - BLOOD PRESSURE INADEQUATELY CONTROLLED [None]
  - PROCEDURAL COMPLICATION [None]
  - SUBARACHNOID HAEMORRHAGE [None]
